FAERS Safety Report 15792901 (Version 1)
Quarter: 2019Q1

REPORT INFORMATION
  Report Type: Spontaneous
  Country: US (occurrence: US)
  Receive Date: 20190103
  Receipt Date: 20190103
  Transmission Date: 20190417
  Serious: No
  Sender: FDA-Public Use
  Company Number: None

PATIENT

DRUGS (2)
  1. DULOXETINE 60MG AND 30 MG [Suspect]
     Active Substance: DULOXETINE
  2. DULOXETINE 30MG [Suspect]
     Active Substance: DULOXETINE

REACTIONS (3)
  - Transcription medication error [None]
  - Product dispensing error [None]
  - Incorrect dose administered [None]
